FAERS Safety Report 7388095-7 (Version None)
Quarter: 2011Q2

REPORT INFORMATION
  Report Type: 
  Country: None (occurrence: None)
  Receive Date: 20110401
  Receipt Date: 20110318
  Transmission Date: 20111010
  Serious: Yes (Hospitalization)
  Sender: FDA-Public Use
  Company Number: US-ELI_LILLY_AND_COMPANY-US201012005868

PATIENT
  Sex: Female

DRUGS (4)
  1. CITRACAL [Concomitant]
  2. CENTRUM SILVER [Concomitant]
  3. FORTEO [Suspect]
     Indication: OSTEOPOROSIS
     Dosage: 20 UG, DAILY (1/D)
     Route: 058
  4. CALCIUM [Concomitant]

REACTIONS (1)
  - DEVICE BREAKAGE [None]
